FAERS Safety Report 9612776 (Version 1)
Quarter: 2013Q4

REPORT INFORMATION
  Report Type: Spontaneous
  Country: BR (occurrence: BR)
  Receive Date: 20131010
  Receipt Date: 20131010
  Transmission Date: 20140711
  Serious: Yes (Other)
  Sender: FDA-Public Use
  Company Number: PHHY2013BR111507

PATIENT
  Sex: Female

DRUGS (3)
  1. FORASEQ [Suspect]
     Indication: ASTHMA
     Dosage: 12/400MCG, 1 CAPSULE OF EACH TREATMENT
     Dates: start: 20130924, end: 20131002
  2. FORASEQ [Suspect]
     Indication: BRONCHITIS
  3. FORASEQ [Suspect]
     Indication: EMPHYSEMA

REACTIONS (4)
  - Muscle spasms [Recovered/Resolved]
  - Fatigue [Recovering/Resolving]
  - Dizziness [Recovered/Resolved]
  - Nausea [Not Recovered/Not Resolved]
